FAERS Safety Report 5564521-0 (Version None)
Quarter: 2007Q4

REPORT INFORMATION
  Report Type: 
  Country: None (occurrence: None)
  Receive Date: 20071213
  Receipt Date: 20071207
  Transmission Date: 20080405
  Serious: Yes (Life-Threatening, Hospitalization, Other)
  Sender: FDA-Public Use
  Company Number: CLOF-10734

PATIENT
  Age: 41 Year
  Sex: Female

DRUGS (26)
  1. CLOFARABINE. MFR:  GENZYME [Suspect]
     Indication: ACUTE MYELOID LEUKAEMIA
     Dosage: 22.5 MG/M2 QD X 5 IV
     Route: 042
     Dates: start: 20071006, end: 20071010
  2. IDARUBICIN HCL [Suspect]
     Indication: ACUTE MYELOID LEUKAEMIA
     Dosage: 10 MG/M2 QD X 3 IV
     Route: 042
     Dates: start: 20071006, end: 20071008
  3. ACETAMINOPHEN [Concomitant]
  4. ALUMINUM AND MAGNESIUM HYDROXIDE AND SIMETHICONE [Concomitant]
  5. CASPOFUNGIN ACETATE [Concomitant]
  6. DAPTOMYCIN [Concomitant]
  7. DEXTROMETHORPHAN/GUAIFENESIN [Concomitant]
  8. DIPHENHYDRAMINE HCL [Concomitant]
  9. DIPHENOXYLATE [Concomitant]
  10. LORAZEPAM [Concomitant]
  11. MAGNESIUM OXIDE [Concomitant]
  12. MEROPENEM [Concomitant]
  13. NYSTATIN [Concomitant]
  14. ONDANSETRON [Concomitant]
  15. PANTOPRAZOLE SODIUM [Concomitant]
  16. POSACANAZOLE [Concomitant]
  17. POTASSIUM CHLORIDE [Concomitant]
  18. PROMETHAZINE [Concomitant]
  19. PROPOXYPHENE HYDROCHLORIDE [Concomitant]
  20. SENOKOT [Concomitant]
  21. SODIUM CHLORIDE [Concomitant]
  22. TEMAZEPAM [Concomitant]
  23. VALTREX [Concomitant]
  24. NOXAFIL [Concomitant]
  25. LEVAQUIN [Concomitant]
  26. COMPAZINE [Concomitant]

REACTIONS (4)
  - BONE MARROW FAILURE [None]
  - FEBRILE NEUTROPENIA [None]
  - INFECTION [None]
  - SUBCUTANEOUS ABSCESS [None]
